FAERS Safety Report 21901426 (Version 2)
Quarter: 2023Q1

REPORT INFORMATION
  Report Type: Spontaneous
  Country: RO (occurrence: RO)
  Receive Date: 20230123
  Receipt Date: 20230228
  Transmission Date: 20230418
  Serious: Yes (Life-Threatening, Hospitalization, Other)
  Sender: FDA-Public Use
  Company Number: RO-ABBVIE-4278616

PATIENT
  Age: 59 Year
  Sex: Male
  Weight: 80 kg

DRUGS (3)
  1. HUMIRA [Suspect]
     Active Substance: ADALIMUMAB
     Indication: Psoriasis
     Route: 058
     Dates: start: 2012, end: 202212
  2. Essentiale (Phospholipids) [Concomitant]
     Indication: Product used for unknown indication
     Dosage: 3 DOSAGE FORMS
     Route: 048
     Dates: start: 2017
  3. URSODIOL [Concomitant]
     Active Substance: URSODIOL
     Indication: Hepatic steatosis
     Dosage: TIME INTERVAL: 0.33333333 DAYS
     Route: 048
     Dates: start: 2017

REACTIONS (7)
  - Myocarditis [Recovered/Resolved]
  - Pulmonary sepsis [Recovered/Resolved]
  - Pneumonia [Recovered/Resolved]
  - Acute kidney injury [Recovered/Resolved]
  - Cardiac failure acute [Recovered/Resolved]
  - Hepatic cytolysis [Unknown]
  - Sepsis [Recovered/Resolved]

NARRATIVE: CASE EVENT DATE: 20221219
